FAERS Safety Report 15894996 (Version 3)
Quarter: 2019Q1

REPORT INFORMATION
  Report Type: Spontaneous
  Country: US (occurrence: US)
  Receive Date: 20190131
  Receipt Date: 20190212
  Transmission Date: 20190417
  Serious: Yes (Other)
  Sender: FDA-Public Use
  Company Number: US-SHIRE-US201903089

PATIENT
  Sex: Male

DRUGS (1)
  1. VYVANSE [Suspect]
     Active Substance: LISDEXAMFETAMINE DIMESYLATE
     Indication: ATTENTION DEFICIT/HYPERACTIVITY DISORDER
     Dosage: 70 MILLIGRAM
     Route: 065

REACTIONS (5)
  - Therapeutic response shortened [Unknown]
  - Alcoholic [Unknown]
  - Inappropriate schedule of product administration [Unknown]
  - Road traffic accident [Unknown]
  - Multiple sclerosis [Unknown]
